FAERS Safety Report 10488593 (Version 1)
Quarter: 2014Q4

REPORT INFORMATION
  Report Type: Spontaneous
  Country: US (occurrence: None)
  Receive Date: 20141001
  Receipt Date: 20141001
  Transmission Date: 20150528
  Serious: Yes (Life-Threatening, Disabling)
  Sender: FDA-Public Use
  Company Number: None

PATIENT
  Age: 67 Year
  Sex: Male
  Weight: 72.58 kg

DRUGS (2)
  1. FENOFIBRATE. [Suspect]
     Active Substance: FENOFIBRATE
     Indication: MYOCARDIAL INFARCTION
     Dosage: 1 TABLET; ONCE DAILY
     Route: 048
     Dates: start: 20130221, end: 20140806
  2. FENOFIBRATE. [Suspect]
     Active Substance: FENOFIBRATE
     Indication: BLOOD CHOLESTEROL INCREASED
     Dosage: 1 TABLET; ONCE DAILY
     Route: 048
     Dates: start: 20130221, end: 20140806

REACTIONS (6)
  - Peripheral swelling [None]
  - Hepatic failure [None]
  - Anaemia [None]
  - Hypoalbuminaemia [None]
  - Gait disturbance [None]
  - Renal failure [None]
